FAERS Safety Report 4767375-5 (Version None)
Quarter: 2005Q3

REPORT INFORMATION
  Report Type: 
  Country: None (occurrence: None)
  Receive Date: 20050913
  Receipt Date: 20050815
  Transmission Date: 20060218
  Serious: Yes (Other)
  Sender: FDA-Public Use
  Company Number: PHBS2005JP11893

PATIENT
  Age: 39 Year
  Sex: Female

DRUGS (2)
  1. NEORAL [Suspect]
     Indication: BONE MARROW TRANSPLANT
     Dosage: 100 MG/D
     Route: 048
     Dates: start: 20040210
  2. PREDONINE [Suspect]
     Indication: BONE MARROW TRANSPLANT
     Dosage: 45 MG/D
     Route: 048
     Dates: start: 20040210

REACTIONS (10)
  - ADENOVIRAL HAEMORRHAGIC CYSTITIS [None]
  - ANAEMIA [None]
  - ANAEMIA HAEMOLYTIC AUTOIMMUNE [None]
  - BLOOD LACTATE DEHYDROGENASE INCREASED [None]
  - COLD AGGLUTININS POSITIVE [None]
  - HAEMATURIA [None]
  - HAEMOLYSIS [None]
  - MICTURITION URGENCY [None]
  - RETICULOCYTOSIS [None]
  - VIRUS URINE TEST POSITIVE [None]
